FAERS Safety Report 25754425 (Version 2)
Quarter: 2025Q3

REPORT INFORMATION
  Report Type: Spontaneous
  Country: JP (occurrence: JP)
  Receive Date: 20250903
  Receipt Date: 20250915
  Transmission Date: 20251021
  Serious: Yes (Other)
  Sender: GILEAD
  Company Number: JP-GILEAD-2025-0725746

PATIENT
  Age: 96 Year
  Sex: Female

DRUGS (3)
  1. VEKLURY [Suspect]
     Active Substance: REMDESIVIR
     Indication: SARS-CoV-2 test positive
     Route: 041
     Dates: start: 20250817, end: 20250817
  2. VEKLURY [Suspect]
     Active Substance: REMDESIVIR
     Route: 041
     Dates: start: 20250818, end: 20250819
  3. DEXAMETHASONE SODIUM PHOSPHATE [Concomitant]
     Active Substance: DEXAMETHASONE SODIUM PHOSPHATE

REACTIONS (3)
  - COVID-19 pneumonia [Recovering/Resolving]
  - Pyrexia [Recovered/Resolved]
  - SARS-CoV-2 test positive [Unknown]

NARRATIVE: CASE EVENT DATE: 20250801
